FAERS Safety Report 8064338-1 (Version None)
Quarter: 2012Q1

REPORT INFORMATION
  Report Type: 
  Country: None (occurrence: None)
  Receive Date: 20120123
  Receipt Date: 20120119
  Transmission Date: 20120608
  Serious: No
  Sender: FDA-Public Use
  Company Number: US-BAYER-2011-043802

PATIENT
  Sex: Female

DRUGS (1)
  1. MIRENA [Suspect]
     Indication: CONTRACEPTION
     Dosage: 20 MCG/24HR, CONT
     Route: 015
     Dates: start: 20110112, end: 20111205

REACTIONS (5)
  - DIZZINESS [None]
  - MIGRAINE [None]
  - VERTIGO [None]
  - VAGINAL HAEMORRHAGE [None]
  - METRORRHAGIA [None]
